FAERS Safety Report 16404899 (Version 3)
Quarter: 2019Q3

REPORT INFORMATION
  Report Type: Report from Study
  Country: GB (occurrence: GB)
  Receive Date: 20190607
  Receipt Date: 20190829
  Transmission Date: 20191004
  Serious: Yes (Other)
  Sender: FDA-Public Use
  Company Number: PHHY2019GB128941

PATIENT
  Sex: Male

DRUGS (2)
  1. HYRIMOZ [Suspect]
     Active Substance: ADALIMUMAB-ADAZ
     Dosage: UNK UNK, Q2W (PRE-FILLED PEN)
     Route: 065
     Dates: start: 20190517
  2. HYRIMOZ [Suspect]
     Active Substance: ADALIMUMAB-ADAZ
     Indication: COLITIS ULCERATIVE
     Dosage: UNK UNK, Q2W (PRE-FILLED PEN)
     Route: 065
     Dates: start: 20190517

REACTIONS (9)
  - Fatigue [Unknown]
  - Rectal haemorrhage [Unknown]
  - Rhinorrhoea [Unknown]
  - Haematochezia [Unknown]
  - Vitamin D decreased [Unknown]
  - Seasonal allergy [Unknown]
  - Dry throat [Unknown]
  - Malaise [Unknown]
  - Haemorrhoidal haemorrhage [Unknown]
